FAERS Safety Report 6601781-9 (Version None)
Quarter: 2010Q1

REPORT INFORMATION
  Report Type: 
  Country: None (occurrence: None)
  Receive Date: 20100225
  Receipt Date: 20100213
  Transmission Date: 20100710
  Serious: Yes (Hospitalization)
  Sender: FDA-Public Use
  Company Number: GB-PFIZER INC-2009155010

PATIENT
  Age: 73 Year
  Sex: Male

DRUGS (9)
  1. BLINDED *NO SUBJECT DRUG [Suspect]
     Indication: RENAL CELL CARCINOMA
     Dosage: 50 MG, 1X/DAY
     Route: 048
     Dates: start: 20081222, end: 20090108
  2. BLINDED *PLACEBO [Suspect]
     Indication: RENAL CELL CARCINOMA
     Dosage: 50 MG, 1X/DAY
     Route: 048
     Dates: start: 20081222, end: 20090108
  3. BLINDED SUNITINIB MALATE [Suspect]
     Indication: RENAL CELL CARCINOMA
     Dosage: 50 MG, 1X/DAY
     Route: 048
     Dates: start: 20081222, end: 20090108
  4. ADCAL [Concomitant]
     Dosage: UNK
     Route: 048
  5. CANDESARTAN [Concomitant]
     Dosage: UNK
     Route: 048
     Dates: end: 20090112
  6. AMLODIPINE [Concomitant]
     Dosage: UNK
     Route: 048
  7. GLICLAZIDE [Concomitant]
     Dosage: UNK
     Route: 048
  8. METFORMIN [Concomitant]
     Dosage: UNK
     Route: 048
     Dates: end: 20090109
  9. OMEPRAZOLE [Concomitant]
     Dosage: UNK
     Route: 048

REACTIONS (3)
  - ACUTE HEPATIC FAILURE [None]
  - HYPERTENSION [None]
  - RENAL FAILURE ACUTE [None]
